FAERS Safety Report 20980212 (Version 1)
Quarter: 2022Q2

REPORT INFORMATION
  Report Type: Spontaneous
  Country: GB (occurrence: GB)
  Receive Date: 20220620
  Receipt Date: 20220620
  Transmission Date: 20220721
  Serious: Yes (Other)
  Sender: FDA-Public Use
  Company Number: None

PATIENT
  Age: 64 Year
  Sex: Male

DRUGS (1)
  1. CEFUROXIME AXETIL [Suspect]
     Active Substance: CEFUROXIME AXETIL
     Indication: Product used for unknown indication
     Dosage: 125 MG IN 1 ML
     Route: 065

REACTIONS (6)
  - Retinal haemorrhage [Unknown]
  - Conjunctival haemorrhage [Unknown]
  - Vitreous haemorrhage [Unknown]
  - Injury [Unknown]
  - Retinal detachment [Unknown]
  - Maculopathy [Unknown]
